FAERS Safety Report 8248260-3 (Version None)
Quarter: 2012Q1

REPORT INFORMATION
  Report Type: 
  Country: None (occurrence: None)
  Receive Date: 20120330
  Receipt Date: 20120320
  Transmission Date: 20120608
  Serious: Yes (Other)
  Sender: FDA-Public Use
  Company Number: US-CELGENEUS-163-21880-12022676

PATIENT
  Sex: Male

DRUGS (7)
  1. WHOLE BLOOD [Concomitant]
     Route: 065
  2. LASIX [Concomitant]
     Route: 065
  3. PRILORFE [Concomitant]
     Route: 065
  4. REVLIMID [Suspect]
     Indication: MULTIPLE MYELOMA
     Dosage: 15 MILLIGRAM
     Route: 048
     Dates: start: 20100628, end: 20101208
  5. REVLIMID [Suspect]
     Dosage: 10 MILLIGRAM
     Route: 048
     Dates: start: 20120201
  6. METOPROLOL SUCCINATE [Concomitant]
     Route: 065
  7. CALCIUM CARBONATE [Concomitant]
     Route: 065

REACTIONS (4)
  - CARDIAC DISORDER [None]
  - PNEUMONIA [None]
  - ANAEMIA [None]
  - ASTHENIA [None]
